FAERS Safety Report 6741203-0 (Version None)
Quarter: 2010Q2

REPORT INFORMATION
  Report Type: 
  Country: None (occurrence: None)
  Receive Date: 20100525
  Receipt Date: 20100525
  Transmission Date: 20101027
  Serious: No
  Sender: FDA-Public Use
  Company Number: None

PATIENT
  Sex: Female
  Weight: 75.7507 kg

DRUGS (1)
  1. CREST W/ FLUORIDE [Suspect]
     Indication: DENTAL CLEANING
     Dosage: 1 INCH ON BRUSH DAILY ORAL-047
     Route: 048
     Dates: start: 20100504, end: 20100513

REACTIONS (2)
  - BURNING SENSATION [None]
  - SKIN EXFOLIATION [None]
